FAERS Safety Report 5892276-9 (Version None)
Quarter: 2008Q3

REPORT INFORMATION
  Report Type: 
  Country: None (occurrence: None)
  Receive Date: 20080919
  Receipt Date: 20080908
  Transmission Date: 20090109
  Serious: Yes (Hospitalization)
  Sender: FDA-Public Use
  Company Number: 236837J08USA

PATIENT
  Age: 57 Year
  Sex: Female
  Weight: 72.5755 kg

DRUGS (9)
  1. REBIF [Suspect]
     Indication: MULTIPLE SCLEROSIS
     Dosage: SEE IMAGE
     Route: 058
     Dates: start: 20080701, end: 20080701
  2. REBIF [Suspect]
     Indication: MULTIPLE SCLEROSIS
     Dosage: SEE IMAGE
     Route: 058
     Dates: start: 20080702, end: 20080701
  3. REBIF [Suspect]
     Indication: MULTIPLE SCLEROSIS
     Dosage: SEE IMAGE
     Route: 058
     Dates: start: 20080701
  4. NORFLEX [Concomitant]
  5. ACETAMINOPHEN [Concomitant]
  6. TRAZODONE HCL [Concomitant]
  7. COLACE (DOCUSATE SODIUM) [Concomitant]
  8. PRAVASTATIN [Concomitant]
  9. MULTIPLE OTHER MEDICATIONS (ALL OTHER THERAPEUTIC PRODUCTS) [Concomitant]

REACTIONS (4)
  - NASAL CONGESTION [None]
  - NO THERAPEUTIC RESPONSE [None]
  - TREMOR [None]
  - URINARY TRACT INFECTION [None]
